FAERS Safety Report 10055115 (Version 2)
Quarter: 2021Q2

REPORT INFORMATION
  Report Type: Spontaneous
  Country: US (occurrence: US)
  Receive Date: 20140402
  Receipt Date: 20210531
  Transmission Date: 20210716
  Serious: No
  Sender: FDA-Public Use
  Company Number: US-SA-2014SA015676

PATIENT
  Age: 45 Year
  Sex: Male

DRUGS (11)
  1. AMLODIPINE [Concomitant]
     Active Substance: AMLODIPINE BESYLATE
     Dosage: 100MG
  2. BUPROPION HCL [Concomitant]
     Active Substance: BUPROPION HYDROCHLORIDE
  3. PAROXETINE. [Concomitant]
     Active Substance: PAROXETINE
  4. AMLODIPINE BESYLATE. [Concomitant]
     Active Substance: AMLODIPINE BESYLATE
  5. OMEPRAZOLE. [Concomitant]
     Active Substance: OMEPRAZOLE
  6. TOPIRAMATE. [Concomitant]
     Active Substance: TOPIRAMATE
     Dosage: 100MG
  7. AUBAGIO [Suspect]
     Active Substance: TERIFLUNOMIDE
     Indication: MULTIPLE SCLEROSIS
     Dosage: 14 MG,QD
     Route: 048
     Dates: start: 20131015
  8. METOPROLOL TARTRATE. [Concomitant]
     Active Substance: METOPROLOL TARTRATE
  9. HYDROCHLOROTHIAZIDE. [Concomitant]
     Active Substance: HYDROCHLOROTHIAZIDE
  10. SUCRALFATE. [Concomitant]
     Active Substance: SUCRALFATE
  11. LOPERAMIDE [Concomitant]
     Active Substance: LOPERAMIDE

REACTIONS (9)
  - Anxiety [Unknown]
  - Depression [Unknown]
  - Rash [Unknown]
  - Influenza [Recovering/Resolving]
  - Decreased appetite [Not Recovered/Not Resolved]
  - Nasopharyngitis [Recovering/Resolving]
  - Fatigue [Unknown]
  - Nausea [Recovered/Resolved]
  - Product dose omission issue [Unknown]

NARRATIVE: CASE EVENT DATE: 201403
